FAERS Safety Report 5821792-0 (Version None)
Quarter: 2008Q3

REPORT INFORMATION
  Report Type: 
  Country: None (occurrence: None)
  Receive Date: 20080724
  Receipt Date: 20080714
  Transmission Date: 20090109
  Serious: Yes (Other)
  Sender: FDA-Public Use
  Company Number: US-PFIZER INC-2008040689

PATIENT
  Sex: Female

DRUGS (2)
  1. CELEBREX [Suspect]
     Indication: PAIN MANAGEMENT
     Route: 048
  2. CELEBREX [Suspect]
     Indication: HIP FRACTURE

REACTIONS (4)
  - CARDIOVASCULAR DISORDER [None]
  - HYPERTENSION [None]
  - POST-TRAUMATIC STRESS DISORDER [None]
  - SKIN INFECTION [None]
